FAERS Safety Report 6936307-3 (Version None)
Quarter: 2010Q3

REPORT INFORMATION
  Report Type: 
  Country: None (occurrence: None)
  Receive Date: 20100823
  Receipt Date: 20100817
  Transmission Date: 20110219
  Serious: Yes (Hospitalization, Other)
  Sender: FDA-Public Use
  Company Number: IT-ROXANE LABORATORIES, INC.-2010-RO-01099RO

PATIENT
  Age: 40 Year
  Sex: Male

DRUGS (6)
  1. LOSARTAN POTASSIUM AND HYDROCHLOROTHIAZIDE [Suspect]
     Indication: PORTAL HYPERTENSION
     Dosage: 50 MG
  2. RAMIPRIL [Suspect]
     Dosage: 2.5 MG
  3. PROPRANOLOL [Suspect]
     Indication: PROPHYLAXIS
  4. FUROSEMIDE [Suspect]
     Indication: GLOMERULONEPHRITIS MEMBRANOUS
     Dosage: 125 MG
  5. LACTULOSE [Suspect]
     Indication: HEPATIC ENCEPHALOPATHY
     Route: 054
  6. LACTULOSE [Suspect]
     Route: 048

REACTIONS (3)
  - GLOMERULONEPHRITIS MEMBRANOUS [None]
  - HEPATIC ENCEPHALOPATHY [None]
  - LIVER DISORDER [None]
